FAERS Safety Report 5506664-3 (Version None)
Quarter: 2007Q4

REPORT INFORMATION
  Report Type: 
  Country: None (occurrence: None)
  Receive Date: 20071101
  Receipt Date: 20071016
  Transmission Date: 20080405
  Serious: Yes (Other)
  Sender: FDA-Public Use
  Company Number: 8027309

PATIENT
  Age: 4 Year

DRUGS (1)
  1. KEPPRA [Suspect]
     Dosage: 600 MG/D

REACTIONS (1)
  - MITOCHONDRIAL CYTOPATHY [None]
